FAERS Safety Report 7533067-2 (Version None)
Quarter: 2011Q2

REPORT INFORMATION
  Report Type: 
  Country: None (occurrence: None)
  Receive Date: 20110608
  Receipt Date: 20110525
  Transmission Date: 20111010
  Serious: Yes (Hospitalization)
  Sender: FDA-Public Use
  Company Number: US-ELI_LILLY_AND_COMPANY-US201104006855

PATIENT
  Sex: Female

DRUGS (11)
  1. ASPIRIN [Concomitant]
     Indication: CARDIAC DISORDER
  2. CALCIUM CARBONATE [Concomitant]
     Dosage: UNK, TID
  3. OMEPRAZOLE [Concomitant]
     Indication: NAUSEA
     Dosage: 20 UG, UNK
  4. AMLODIPINE [Concomitant]
  5. ATENOLOL [Concomitant]
  6. FORTEO [Suspect]
     Indication: OSTEOPOROSIS
     Dosage: 20 UG, QD
     Dates: start: 20110330
  7. FORTEO [Suspect]
     Dosage: 20 UG, QD
  8. SIMVASTATIN [Concomitant]
     Indication: BLOOD CHOLESTEROL
  9. POTASSIUM CHLORIDE [Concomitant]
  10. LEVOTHYROXINE SODIUM [Concomitant]
  11. MELOXICAM [Concomitant]
     Dosage: UNK UG, UNK

REACTIONS (10)
  - VOMITING [None]
  - ASTHENIA [None]
  - WEIGHT DECREASED [None]
  - PAIN [None]
  - NAUSEA [None]
  - DECREASED APPETITE [None]
  - MALAISE [None]
  - HYPOACUSIS [None]
  - HIP ARTHROPLASTY [None]
  - BONE DISORDER [None]
